FAERS Safety Report 16667604 (Version 1)
Quarter: 2019Q3

REPORT INFORMATION
  Report Type: Spontaneous
  Country: CA (occurrence: CA)
  Receive Date: 20190805
  Receipt Date: 20190805
  Transmission Date: 20191004
  Serious: Yes (Other)
  Sender: FDA-Public Use
  Company Number: CA-PFIZER INC-2019329841

PATIENT
  Age: 78 Year
  Sex: Female
  Weight: 78 kg

DRUGS (11)
  1. MEROPENEM. [Interacting]
     Active Substance: MEROPENEM
     Indication: PNEUMONIA ASPIRATION
  2. LEVETIRACETAM. [Concomitant]
     Active Substance: LEVETIRACETAM
     Dosage: UNK
  3. ZOPICLONE [Concomitant]
     Active Substance: ZOPICLONE
     Dosage: UNK
  4. INNOHEP [Concomitant]
     Active Substance: TINZAPARIN SODIUM
     Dosage: UNK
  5. VENLAFAXINE XR [Concomitant]
     Active Substance: VENLAFAXINE HYDROCHLORIDE
     Dosage: UNK
  6. VALPROIC ACID. [Interacting]
     Active Substance: VALPROIC ACID
     Indication: SEIZURE
     Dosage: 800 MG, 3X/DAY
  7. VALPROIC ACID. [Interacting]
     Active Substance: VALPROIC ACID
     Dosage: UNK
  8. CLOZAPINE. [Concomitant]
     Active Substance: CLOZAPINE
     Dosage: UNK
  9. ACETAMINOPHEN. [Concomitant]
     Active Substance: ACETAMINOPHEN
     Dosage: UNK
  10. LANSOPRAZOLE. [Concomitant]
     Active Substance: LANSOPRAZOLE
     Dosage: UNK
  11. MEROPENEM. [Suspect]
     Active Substance: MEROPENEM
     Indication: URINARY TRACT INFECTION
     Dosage: 500 MG, 4X/DAY
     Route: 042

REACTIONS (5)
  - Depressed level of consciousness [Recovered/Resolved]
  - Anticonvulsant drug level decreased [Recovered/Resolved]
  - Labelled drug-drug interaction medication error [Recovered/Resolved]
  - Seizure [Recovered/Resolved]
  - Blepharospasm [Recovered/Resolved]
